FAERS Safety Report 4775769-7 (Version None)
Quarter: 2005Q3

REPORT INFORMATION
  Report Type: 
  Country: None (occurrence: None)
  Receive Date: 20050922
  Receipt Date: 20050823
  Transmission Date: 20060218
  Serious: Yes (Hospitalization)
  Sender: FDA-Public Use
  Company Number: FR-NOVOPROD-246449

PATIENT
  Age: 49 Year
  Sex: Female
  Weight: 76 kg

DRUGS (5)
  1. NORDITROPIN SIMPLEXX [Suspect]
     Indication: GROWTH HORMONE DEFICIENCY
  2. HYDROCORTISONE [Concomitant]
     Dosage: 10 MG, QD
     Route: 048
     Dates: start: 19900101
  3. LEVOTHYROXINE SODIUM [Concomitant]
     Dosage: 100 UG, QD
     Route: 048
     Dates: start: 19900101
  4. ESTROGEL [Concomitant]
     Dosage: 3 MG, QD
     Route: 048
     Dates: start: 19971001
  5. UTROGESTAN [Concomitant]
     Dosage: 200 MG, QD
     Route: 048
     Dates: start: 20021023

REACTIONS (3)
  - ABDOMINAL DISCOMFORT [None]
  - MALAISE [None]
  - NAUSEA [None]
